FAERS Safety Report 9142529 (Version 1)
Quarter: 2013Q1

REPORT INFORMATION
  Report Type: Spontaneous
  Country: CA (occurrence: CA)
  Receive Date: 20130306
  Receipt Date: 20130306
  Transmission Date: 20140127
  Serious: Yes (Hospitalization, Other)
  Sender: FDA-Public Use
  Company Number: CA-AMGEN-CANSP2013006285

PATIENT
  Age: 59 Year
  Sex: Female
  Weight: 78 kg

DRUGS (7)
  1. ENBREL [Suspect]
     Indication: RHEUMATOID ARTHRITIS
     Dosage: 50 MG, QWK
     Route: 058
     Dates: start: 20101126, end: 201210
  2. CORTISONE [Concomitant]
     Dosage: UNK
  3. ARAVA [Concomitant]
     Indication: RHEUMATOID ARTHRITIS
     Dosage: 20MG DIE
     Route: 048
     Dates: start: 2008
  4. PLAQUENIL                          /00072602/ [Concomitant]
     Indication: RHEUMATOID ARTHRITIS
     Dosage: 200 UNK, BID
     Route: 048
     Dates: start: 2003
  5. ASA [Concomitant]
     Dosage: UNK
  6. VASOTEC                            /00574902/ [Concomitant]
     Indication: ARTERIOSCLEROSIS
     Dosage: UNK
     Route: 048
  7. LIPITOR [Concomitant]
     Indication: ARTERIOSCLEROSIS
     Dosage: UNK
     Route: 048

REACTIONS (4)
  - Abasia [Unknown]
  - Arthritis infective [Not Recovered/Not Resolved]
  - Device related infection [Not Recovered/Not Resolved]
  - Arthritis bacterial [Unknown]
